FAERS Safety Report 19674509 (Version 1)
Quarter: 2021Q3

REPORT INFORMATION
  Report Type: Spontaneous
  Country: US (occurrence: US)
  Receive Date: 20210809
  Receipt Date: 20210809
  Transmission Date: 20211014
  Serious: Yes (Hospitalization)
  Sender: FDA-Public Use
  Company Number: None

PATIENT
  Age: 71 Year
  Sex: Male
  Weight: 77 kg

DRUGS (7)
  1. TECARTUS [Suspect]
     Active Substance: BREXUCABTAGENE AUTOLEUCEL
     Indication: MANTLE CELL LYMPHOMA
     Dosage: ?          OTHER FREQUENCY:ONCE;?
     Route: 041
     Dates: start: 20210415, end: 20210415
  2. ACYCLOVIR (ZOVIRAX) 800 MG TABLET [Concomitant]
     Dates: start: 20210415, end: 20210809
  3. DILITAZEM [Concomitant]
     Dates: start: 20210509, end: 20210512
  4. METHYLPREDNISONE [Concomitant]
     Active Substance: METHYLPREDNISOLONE
     Dates: start: 20210421, end: 20210514
  5. PIPERACILLIN?TAZOBACTAM (ZOSYN) 3.375 GRAM/50 ML DEXTROSE IVPB [Concomitant]
     Dates: start: 20210421, end: 20210423
  6. AMLODIPINE [Concomitant]
     Active Substance: AMLODIPINE BESYLATE
     Dates: start: 20210512, end: 20210608
  7. LEVETIRACETAM (KEPPRA) 500 MG TABLET [Concomitant]
     Dates: start: 20210415

REACTIONS (2)
  - Cytokine release syndrome [None]
  - Immune effector cell-associated neurotoxicity syndrome [None]

NARRATIVE: CASE EVENT DATE: 20210415
